FAERS Safety Report 7089090-8 (Version None)
Quarter: 2010Q4

REPORT INFORMATION
  Report Type: 
  Country: None (occurrence: None)
  Receive Date: 20101108
  Receipt Date: 20101028
  Transmission Date: 20110411
  Serious: Yes (Hospitalization)
  Sender: FDA-Public Use
  Company Number: B0683174A

PATIENT
  Sex: Male

DRUGS (16)
  1. FORTUM [Suspect]
     Route: 065
     Dates: start: 20100901, end: 20100901
  2. OXYCODON [Concomitant]
  3. FENTANYL CITRATE [Concomitant]
  4. OMEPRAZOLE [Concomitant]
  5. METOPROLOL [Concomitant]
  6. ALFUZOSIN [Concomitant]
  7. TIMOLOL MALEATE [Concomitant]
  8. DEXTRIFERRON [Concomitant]
  9. MEKLOZIN [Concomitant]
  10. ACETAMINOPHEN [Concomitant]
  11. WARFARIN [Concomitant]
  12. GLYBURIDE [Concomitant]
  13. EPREX [Concomitant]
  14. LACTULOSE [Concomitant]
  15. ALLOPURINOL [Concomitant]
  16. FUROSEMIDE [Concomitant]

REACTIONS (3)
  - ABDOMINAL PAIN [None]
  - CLOSTRIDIUM TEST POSITIVE [None]
  - DIARRHOEA [None]
